FAERS Safety Report 8856722 (Version 1)
Quarter: 2012Q4

REPORT INFORMATION
  Report Type: Spontaneous
  Country: GB (occurrence: None)
  Receive Date: 20121019
  Receipt Date: 20121019
  Transmission Date: 20130627
  Serious: Yes (Other)
  Sender: FDA-Public Use
  Company Number: AUR-APL-2012-04430

PATIENT
  Age: 61 Year
  Sex: Male
  Weight: 89 kg

DRUGS (3)
  1. SIMVASTATIN (SIMVASTATIN) [Suspect]
     Indication: CHOLESTEROL HIGH
     Route: 048
     Dates: start: 20101125, end: 20120705
  2. AMLODIPINE [Concomitant]
  3. LANSOPRAZOLE [Concomitant]

REACTIONS (2)
  - Liver function test abnormal [None]
  - Alanine aminotransferase increased [None]
